FAERS Safety Report 4546221-9 (Version None)
Quarter: 2005Q1

REPORT INFORMATION
  Report Type: 
  Country: None (occurrence: None)
  Receive Date: 20050106
  Receipt Date: 20041123
  Transmission Date: 20050727
  Serious: Yes (Hospitalization)
  Sender: FDA-Public Use
  Company Number: FI-ROCHE-387020

PATIENT
  Age: 64 Year
  Sex: Male

DRUGS (21)
  1. DACLIZUMAB [Suspect]
     Route: 042
     Dates: start: 20040709, end: 20040709
  2. DACLIZUMAB [Suspect]
     Route: 042
     Dates: start: 20040716, end: 20040716
  3. MYCOPHENOLATE MOFETIL [Suspect]
     Route: 042
     Dates: start: 20040710, end: 20040714
  4. MYCOPHENOLATE MOFETIL [Suspect]
     Route: 048
     Dates: start: 20040715, end: 20040908
  5. MYCOPHENOLATE MOFETIL [Suspect]
     Route: 048
     Dates: start: 20040909
  6. TACROLIMUS [Suspect]
     Dosage: DOSE ADJUSTED TO REACH PREDEFINED TARGET LEVELS.
     Route: 048
     Dates: start: 20040714
  7. METHYLPREDNISOLONE [Suspect]
     Dosage: DOSE TAPERED ACCORDING TO LOCAL PROTOCOL.
     Route: 065
     Dates: start: 20040710, end: 20040831
  8. METHYLPREDNISOLONE [Suspect]
     Dosage: DOSING AMOUNT REPORTED AS 4MG + 240MG
     Route: 065
     Dates: start: 20041214, end: 20041214
  9. METHYLPREDNISOLONE [Suspect]
     Dosage: DOSE TAPERED ACCORDING TO LOCAL PROTOCOL.
     Route: 065
     Dates: start: 20041215
  10. PREDNISONE [Suspect]
     Route: 065
     Dates: start: 20040901, end: 20041213
  11. PIPERACILLIN SODIUM [Concomitant]
     Dates: start: 20040709, end: 20040713
  12. TOBRAMYCINSULFAT [Concomitant]
     Dates: start: 20040709, end: 20040713
  13. FLUKONAZOL [Concomitant]
     Indication: INFECTION PROPHYLAXIS
     Dates: start: 20040709, end: 20040713
  14. OXYCONTIN [Concomitant]
     Indication: PAIN
     Dates: start: 20040709, end: 20040715
  15. ESOMEPRAZOLE [Concomitant]
     Indication: PROPHYLAXIS
     Dates: start: 20040709, end: 20040713
  16. DALTEPARIN-NATRIUM [Concomitant]
     Indication: THROMBOSIS PROPHYLAXIS
     Dates: start: 20040709, end: 20040714
  17. FUROSEMIDE [Concomitant]
     Dates: start: 20040709, end: 20040709
  18. ACETYLSALICYLIC ACID SRT [Concomitant]
     Indication: THROMBOSIS PROPHYLAXIS
     Dates: start: 20040715
  19. METOPROLOLTARTRAT [Concomitant]
     Indication: HYPERTENSION
     Dates: start: 20040720
  20. TRIMETOPRIM [Concomitant]
     Indication: INFECTION PROPHYLAXIS
     Dates: start: 20040726
  21. ZOPICLON [Concomitant]
     Indication: INSOMNIA
     Dates: start: 20040716, end: 20040728

REACTIONS (2)
  - CYTOMEGALOVIRUS INFECTION [None]
  - GASTRIC ULCER [None]
